FAERS Safety Report 4845371-7 (Version None)
Quarter: 2005Q4

REPORT INFORMATION
  Report Type: 
  Country: None (occurrence: None)
  Receive Date: 20051125
  Receipt Date: 20051114
  Transmission Date: 20060501
  Serious: Yes (Hospitalization, Disabling)
  Sender: FDA-Public Use
  Company Number: 12893

PATIENT
  Age: 39 Year
  Sex: Female

DRUGS (4)
  1. METHOBLASTIN [Suspect]
     Indication: RHEUMATOID ARTHRITIS
     Dosage: 205 MG WEEKLY PO
     Route: 048
  2. METHOBLASTIN [Suspect]
     Indication: RHEUMATOID ARTHRITIS
     Dosage: 2.5 MG WEEKLY PO
     Route: 048
  3. SALAZOPYRIN [Suspect]
     Dosage: 2 PO
     Route: 048
  4. SALAZOPYRIN [Suspect]
     Dosage: 3 PO
     Route: 048

REACTIONS (9)
  - ASTHENIA [None]
  - BIOPSY LIVER ABNORMAL [None]
  - DYSSTASIA [None]
  - HEPATOCELLULAR DAMAGE [None]
  - NAUSEA [None]
  - POLYMYOSITIS [None]
  - SCLERODERMA [None]
  - SKIN DISORDER [None]
  - WEIGHT DECREASED [None]
